FAERS Safety Report 7382114-X (Version None)
Quarter: 2011Q1

REPORT INFORMATION
  Report Type: 
  Country: None (occurrence: None)
  Receive Date: 20110329
  Receipt Date: 20110327
  Transmission Date: 20110831
  Serious: Yes (Death, Hospitalization, Other)
  Sender: FDA-Public Use
  Company Number: PHHO2011IL03388

PATIENT
  Age: 34 Year
  Sex: Female
  Weight: 43 kg

DRUGS (1)
  1. AMN107 [Suspect]
     Indication: CHRONIC MYELOID LEUKAEMIA
     Dosage: 200 MG, BID
     Route: 048
     Dates: start: 20100111

REACTIONS (7)
  - ASTHENIA [None]
  - RENAL FAILURE ACUTE [None]
  - THROMBOTIC THROMBOCYTOPENIC PURPURA [None]
  - CEREBRAL HAEMORRHAGE [None]
  - CRANIECTOMY [None]
  - COUGH [None]
  - ANAEMIA [None]
